FAERS Safety Report 24376256 (Version 1)
Quarter: 2024Q3

REPORT INFORMATION
  Report Type: Report from Study
  Country: US (occurrence: US)
  Receive Date: 20240930
  Receipt Date: 20240930
  Transmission Date: 20241016
  Serious: No
  Sender: ACADIA PHARMACEUTICALS
  Company Number: US-ACADIA PHARMACEUTICALS INC.-ACA-2024-PIM-005559

PATIENT
  Sex: Female

DRUGS (18)
  1. NUPLAZID [Suspect]
     Active Substance: PIMAVANSERIN TARTRATE
     Indication: Parkinson^s disease
     Dosage: 34 MILLIGRAM, QD
     Route: 048
     Dates: start: 202408
  2. DROXIDOPA [Concomitant]
     Active Substance: DROXIDOPA
  3. LUMIGAN [Concomitant]
     Active Substance: BIMATOPROST
  4. FERROUS SULFATE [Concomitant]
     Active Substance: FERROUS SULFATE
  5. BUSPIRONE [Concomitant]
     Active Substance: BUSPIRONE HYDROCHLORIDE
  6. GABAPENTIN [Concomitant]
     Active Substance: GABAPENTIN
  7. PAMELOR [Concomitant]
     Active Substance: NORTRIPTYLINE HYDROCHLORIDE
  8. GALANTAMINE [Concomitant]
     Active Substance: GALANTAMINE
  9. VITAMIN B12 [Concomitant]
     Active Substance: CYANOCOBALAMIN
  10. MELATONIN [Concomitant]
     Active Substance: MELATONIN
  11. VITAMIN D3 [Concomitant]
     Active Substance: CHOLECALCIFEROL
  12. AMITIZA [Concomitant]
     Active Substance: LUBIPROSTONE
  13. VITAMIN B2 [Concomitant]
     Active Substance: RIBOFLAVIN
  14. DUOPA [Concomitant]
     Active Substance: CARBIDOPA\LEVODOPA
  15. MIDODRINE [Concomitant]
     Active Substance: MIDODRINE
  16. FLUDROCORTISONE [Concomitant]
     Active Substance: FLUDROCORTISONE
  17. LUBIPROSTONE [Concomitant]
     Active Substance: LUBIPROSTONE
  18. CAPTOPRIL [Concomitant]
     Active Substance: CAPTOPRIL

REACTIONS (1)
  - Drug ineffective [Unknown]
